FAERS Safety Report 9207818 (Version 1)
Quarter: 2013Q2

REPORT INFORMATION
  Report Type: Report from Study
  Country: KR (occurrence: KR)
  Receive Date: 20130403
  Receipt Date: 20130403
  Transmission Date: 20140414
  Serious: Yes (Other)
  Sender: FDA-Public Use
  Company Number: KR-NAPPMUNDI-GBR-2013-0013597

PATIENT
  Age: 62 Year
  Sex: Female

DRUGS (2)
  1. OXYCODONE [Suspect]
     Indication: CANCER PAIN
     Dosage: UNK
     Route: 048
     Dates: start: 20071027
  2. MAGNESIUM OXIDE [Concomitant]
     Dosage: UNK
     Dates: start: 20071030

REACTIONS (4)
  - Delirium [Unknown]
  - Somnolence [Unknown]
  - Respiratory depression [Unknown]
  - Myoclonus [Unknown]
